FAERS Safety Report 18344391 (Version 1)
Quarter: 2020Q4

REPORT INFORMATION
  Report Type: Other
  Country: SE (occurrence: SE)
  Receive Date: 20201005
  Receipt Date: 20201005
  Transmission Date: 20210114
  Serious: Yes (Other)
  Sender: FDA-Public Use
  Company Number: SE-ROCHE-2688097

PATIENT

DRUGS (1)
  1. RITUXIMAB. [Suspect]
     Active Substance: RITUXIMAB
     Indication: PROGRESSIVE MULTIPLE SCLEROSIS
     Dosage: FOLLOWED BY 2 ML NACL
     Route: 037

REACTIONS (3)
  - Deep vein thrombosis [Unknown]
  - Basal cell carcinoma [Unknown]
  - Type 2 diabetes mellitus [Unknown]
